FAERS Safety Report 9315382 (Version 1)
Quarter: 2013Q2

REPORT INFORMATION
  Report Type: Spontaneous
  Country: DE (occurrence: DE)
  Receive Date: 20130529
  Receipt Date: 20130529
  Transmission Date: 20140414
  Serious: Yes (Hospitalization)
  Sender: FDA-Public Use
  Company Number: DE-ABBOTT-13P-062-1094250-00

PATIENT
  Sex: Male

DRUGS (1)
  1. HUMIRA [Suspect]
     Indication: PRODUCT USED FOR UNKNOWN INDICATION
     Route: 058
     Dates: start: 20130221

REACTIONS (4)
  - Breast pain [Recovering/Resolving]
  - Pilonidal cyst [Recovering/Resolving]
  - Back pain [Recovering/Resolving]
  - Coccydynia [Recovering/Resolving]
